FAERS Safety Report 8139676 (Version 3)
Quarter: 2013Q2

REPORT INFORMATION
  Report Type: Spontaneous
  Country: AT (occurrence: AT)
  Receive Date: 20110916
  Receipt Date: 20130523
  Transmission Date: 20140414
  Serious: Yes (Hospitalization)
  Sender: FDA-Public Use
  Company Number: AT-JNJFOC-20110903408

PATIENT
  Age: 56 Year
  Sex: Male
  Weight: 90 kg

DRUGS (2)
  1. STELARA [Suspect]
     Indication: PSORIASIS
     Route: 058
     Dates: start: 20091228, end: 20110907
  2. METHOTREXATE [Concomitant]
     Route: 065
     Dates: start: 20090820, end: 20091228

REACTIONS (1)
  - Transitional cell carcinoma [Unknown]
